FAERS Safety Report 9170087 (Version 2)
Quarter: 2013Q2

REPORT INFORMATION
  Report Type: Spontaneous
  Country: US (occurrence: US)
  Receive Date: 20130319
  Receipt Date: 20130425
  Transmission Date: 20140414
  Serious: Yes (Other)
  Sender: FDA-Public Use
  Company Number: US-BAYER-2013-031432

PATIENT
  Age: 37 Year
  Sex: Female

DRUGS (1)
  1. MIRENA [Suspect]
     Indication: CONTRACEPTION
     Dosage: 20 MCG/24HR, CONT
     Route: 015
     Dates: start: 20121214, end: 20130103

REACTIONS (11)
  - Genital infection [None]
  - Vaginal odour [None]
  - Genital rash [None]
  - Genital discomfort [None]
  - Dyspareunia [None]
  - Headache [None]
  - Rash [Recovered/Resolved]
  - Hypersensitivity [None]
  - Abdominal pain [None]
  - Mood altered [None]
  - Irritability [None]
